FAERS Safety Report 6590402-X (Version None)
Quarter: 2010Q1

REPORT INFORMATION
  Report Type: 
  Country: None (occurrence: None)
  Receive Date: 20100219
  Receipt Date: 20100209
  Transmission Date: 20100710
  Serious: Yes (Death)
  Sender: FDA-Public Use
  Company Number: US-ROCHE-677930

PATIENT
  Sex: Female
  Weight: 75 kg

DRUGS (6)
  1. PEGASYS [Suspect]
     Indication: HEPATITIS C
     Route: 058
     Dates: start: 20091212
  2. RIBAVIRIN [Suspect]
     Indication: HEPATITIS C
     Route: 048
     Dates: start: 20091212
  3. GABAPENTIN [Concomitant]
     Indication: NEUROPATHY PERIPHERAL
     Route: 048
     Dates: start: 20070101
  4. MORPHINE [Concomitant]
     Route: 048
     Dates: start: 20070101
  5. KLONOPIN [Concomitant]
     Indication: DEPRESSION
     Route: 048
     Dates: start: 20071001
  6. LASIX [Concomitant]
     Route: 048
     Dates: start: 20070101

REACTIONS (6)
  - ASTHENIA [None]
  - COUGH [None]
  - DYSPNOEA EXERTIONAL [None]
  - LETHARGY [None]
  - LIVER DISORDER [None]
  - RESPIRATORY TRACT CONGESTION [None]
